FAERS Safety Report 12772158 (Version 1)
Quarter: 2016Q3

REPORT INFORMATION
  Report Type: Spontaneous
  Country: JP (occurrence: JP)
  Receive Date: 20160922
  Receipt Date: 20160922
  Transmission Date: 20161109
  Serious: Yes (Other)
  Sender: FDA-Public Use
  Company Number: JP-009507513-1608JPN009844

PATIENT

DRUGS (1)
  1. TEMODAL [Suspect]
     Active Substance: TEMOZOLOMIDE
     Indication: MALIGNANT GLIOMA
     Dosage: 150 MG, QD
     Route: 048
     Dates: end: 201608

REACTIONS (2)
  - Dysphagia [Unknown]
  - Disease progression [Unknown]

NARRATIVE: CASE EVENT DATE: 201608
